FAERS Safety Report 4694582-2 (Version None)
Quarter: 2005Q2

REPORT INFORMATION
  Report Type: 
  Country: None (occurrence: None)
  Receive Date: 20050620
  Receipt Date: 20050609
  Transmission Date: 20051028
  Serious: Yes (Death)
  Sender: FDA-Public Use
  Company Number: US-SANOFI-SYNTHELABO-A03200501771

PATIENT
  Sex: Male

DRUGS (1)
  1. ELOXATIN [Suspect]
     Indication: COLORECTAL CANCER
     Route: 042

REACTIONS (2)
  - CARDIO-RESPIRATORY ARREST [None]
  - DEATH [None]
